FAERS Safety Report 24917574 (Version 1)
Quarter: 2025Q1

REPORT INFORMATION
  Report Type: Spontaneous
  Country: US (occurrence: None)
  Receive Date: 20250203
  Receipt Date: 20250203
  Transmission Date: 20250409
  Serious: No
  Sender: FDA-CTU
  Company Number: None

PATIENT

DRUGS (1)
  1. TEZSPIRE [Suspect]
     Active Substance: TEZEPELUMAB-EKKO

REACTIONS (7)
  - Dyspnoea [None]
  - Asthma [None]
  - Anaemia [None]
  - Depression [None]
  - Cerebrovascular accident [None]
  - Pneumonia viral [None]
  - Pneumonia bacterial [None]
